FAERS Safety Report 21009082 (Version 5)
Quarter: 2022Q3

REPORT INFORMATION
  Report Type: Spontaneous
  Country: IT (occurrence: IT)
  Receive Date: 20220627
  Receipt Date: 20220808
  Transmission Date: 20221027
  Serious: Yes (Other)
  Sender: FDA-Public Use
  Company Number: IT-MEDAC PHARMA SRL-202200010

PATIENT
  Age: 77 Year
  Sex: Male

DRUGS (13)
  1. SORAFENIB [Suspect]
     Active Substance: SORAFENIB
     Indication: Papillary thyroid cancer
     Dosage: 800 MILLIGRAM, QD (2 TABLET OF 200 MG IN MORNING AND 2 TABLETS OF 200MG AT NIGHT DAILY)
     Route: 065
     Dates: start: 202105
  2. SORAFENIB [Suspect]
     Active Substance: SORAFENIB
     Indication: Thyroid cancer
     Dosage: 300 MILLIGRAM, QD (DOSE OF SORAFENIB WAS REDUCED TO THREE TABLETS PER DAY)
     Route: 065
  3. SORAFENIB [Suspect]
     Active Substance: SORAFENIB
     Dosage: UNK, THREE TABLETS A DAY ON ONE WEEK AND TWO TABLETS A DAY ON THE NEXT WEEK
     Route: 065
  4. SORAFENIB [Suspect]
     Active Substance: SORAFENIB
     Dosage: 200 MILLIGRAM (200 MG)
     Route: 065
     Dates: start: 202105
  5. SORAFENIB [Suspect]
     Active Substance: SORAFENIB
     Dosage: 600 MILLIGRAM, QD
     Route: 065
  6. SORAFENIB [Suspect]
     Active Substance: SORAFENIB
     Dosage: 800 MILLIGRAM, QD, 400 MG, BID (TWO TABLETS OF 200 MG IN THE MORNING
     Route: 065
  7. DENOSUMAB [Suspect]
     Active Substance: DENOSUMAB
     Indication: Thyroid cancer
     Dosage: UNK
     Route: 065
  8. DENOSUMAB [Suspect]
     Active Substance: DENOSUMAB
     Indication: Papillary thyroid cancer
  9. ANTALGIC [Concomitant]
     Indication: Cough
     Dosage: UNK
     Route: 065
  10. ANTALGIC [Concomitant]
     Indication: Pain
  11. ANTALGIC [Concomitant]
     Indication: Asthenia
  12. ANTALGIC [Concomitant]
     Indication: Dyspnoea
  13. DENOSUMAB [Concomitant]
     Active Substance: DENOSUMAB
     Dosage: UNK
     Route: 065

REACTIONS (6)
  - Palmar-plantar erythrodysaesthesia syndrome [Unknown]
  - Thrombocytopenia [Unknown]
  - Mucosal inflammation [Unknown]
  - Drug ineffective [Unknown]
  - Off label use [Unknown]
  - Dysphagia [Unknown]

NARRATIVE: CASE EVENT DATE: 20210801
